FAERS Safety Report 10478650 (Version 1)
Quarter: 2014Q3

REPORT INFORMATION
  Report Type: Report from Study
  Country: US (occurrence: US)
  Receive Date: 20140926
  Receipt Date: 20140926
  Transmission Date: 20150326
  Serious: Yes (Other)
  Sender: FDA-Public Use
  Company Number: US-009507513-1409USA011963

PATIENT
  Age: 59 Year

DRUGS (2)
  1. PROVENTIL [Suspect]
     Active Substance: ALBUTEROL
     Indication: WHEEZING
     Dosage: 2 DF, Q6H (2 PUFFS EVERY 6 HOURS AS NEEDED)
     Route: 055
  2. AVELOX [Suspect]
     Active Substance: MOXIFLOXACIN HYDROCHLORIDE
     Indication: PNEUMONIA
     Dosage: 400 MG, DAILY
     Route: 048

REACTIONS (1)
  - Rhonchi [Unknown]

NARRATIVE: CASE EVENT DATE: 20110411
